FAERS Safety Report 19806525 (Version 1)
Quarter: 2021Q3

REPORT INFORMATION
  Report Type: Spontaneous
  Country: DE (occurrence: DE)
  Receive Date: 20210909
  Receipt Date: 20210909
  Transmission Date: 20211014
  Serious: Yes (Hospitalization, Other)
  Sender: FDA-Public Use
  Company Number: DE-UCBSA-2021042297

PATIENT
  Age: 50 Year
  Sex: Female
  Weight: 115 kg

DRUGS (1)
  1. VIMPAT [Suspect]
     Active Substance: LACOSAMIDE
     Indication: DRUG THERAPY
     Dosage: 1 TABLET IN THE MORNING AND 1 TABLET IN THE EVENING
     Route: 048
     Dates: start: 20210318, end: 20210324

REACTIONS (13)
  - Tachycardia [Recovered/Resolved]
  - Rash [Recovered/Resolved]
  - Vocal cord disorder [Recovered/Resolved]
  - Nausea [Recovered/Resolved]
  - Wheezing [Recovered/Resolved]
  - Pharyngeal swelling [Recovered/Resolved]
  - Throat tightness [Recovered/Resolved]
  - Swollen tongue [Recovered/Resolved]
  - Laryngeal pain [Recovered/Resolved]
  - Dysphonia [Recovered/Resolved]
  - Anaphylactic reaction [Recovered/Resolved]
  - Flushing [Recovered/Resolved]
  - Product use in unapproved indication [Unknown]

NARRATIVE: CASE EVENT DATE: 20210318
